FAERS Safety Report 6645069-9 (Version None)
Quarter: 2010Q1

REPORT INFORMATION
  Report Type: 
  Country: None (occurrence: None)
  Receive Date: 20100322
  Receipt Date: 20100312
  Transmission Date: 20100710
  Serious: Yes (Hospitalization)
  Sender: FDA-Public Use
  Company Number: BR-TYCO HEALTHCARE/MALLINCKRODT-T201000827

PATIENT

DRUGS (2)
  1. OPTIRAY 350 [Suspect]
     Indication: COMPUTERISED TOMOGRAM HEAD
     Dosage: 50 ML, SINGLE
     Route: 042
     Dates: start: 20100302, end: 20100302
  2. BETAHISTINE [Suspect]
     Indication: INNER EAR DISORDER

REACTIONS (7)
  - ANAPHYLACTOID REACTION [None]
  - ANXIETY [None]
  - CHEST PAIN [None]
  - HYPOTENSION [None]
  - RESPIRATORY DEPRESSION [None]
  - SHOCK [None]
  - URTICARIA [None]
